FAERS Safety Report 20858940 (Version 2)
Quarter: 2022Q3

REPORT INFORMATION
  Report Type: Spontaneous
  Country: HU (occurrence: HU)
  Receive Date: 20220522
  Receipt Date: 20220916
  Transmission Date: 20221027
  Serious: Yes (Disabling, Other)
  Sender: FDA-Public Use
  Company Number: None

PATIENT
  Sex: Female

DRUGS (19)
  1. DOCETAXEL [Suspect]
     Active Substance: DOCETAXEL
     Indication: Invasive ductal breast carcinoma
     Dosage: 100 MG/M2, 1X
     Route: 042
     Dates: start: 20211008, end: 20211008
  2. DOCETAXEL [Suspect]
     Active Substance: DOCETAXEL
     Dosage: 100 MG/M2, 1X
     Route: 042
     Dates: start: 20211029, end: 20211029
  3. HERCEPTIN [Suspect]
     Active Substance: TRASTUZUMAB
     Indication: Invasive ductal breast carcinoma
     Dosage: 8 MG/KG, 1X
     Route: 042
     Dates: start: 20211008, end: 20211008
  4. HERCEPTIN [Suspect]
     Active Substance: TRASTUZUMAB
     Dosage: 6 MG/KG, 1X
     Route: 042
     Dates: start: 20211029, end: 20211029
  5. PERJETA [Suspect]
     Active Substance: PERTUZUMAB
     Indication: Invasive ductal breast carcinoma
     Dosage: 840 MG
     Dates: start: 20211008, end: 20211008
  6. PERJETA [Suspect]
     Active Substance: PERTUZUMAB
     Dosage: 420 MG
     Dates: start: 20211029, end: 20211029
  7. PERTUZUMAB [Suspect]
     Active Substance: PERTUZUMAB
     Indication: Invasive ductal breast carcinoma
     Dosage: 420 MG, 1X
     Route: 042
     Dates: start: 20211029, end: 20211029
  8. PERTUZUMAB [Suspect]
     Active Substance: PERTUZUMAB
     Dosage: 840 MG, 1X
     Route: 042
     Dates: start: 20211008, end: 20211008
  9. CHLOROPYRAMINE HYDROCHLORIDE [Concomitant]
     Active Substance: CHLOROPYRAMINE HYDROCHLORIDE
     Indication: Premedication
     Dosage: 20 MG, TOTAL
     Route: 042
     Dates: start: 20211008, end: 20211008
  10. CHLOROPYRAMINE HYDROCHLORIDE [Concomitant]
     Active Substance: CHLOROPYRAMINE HYDROCHLORIDE
     Dosage: 20 MG, TOTAL
     Route: 042
     Dates: start: 20211029, end: 20211029
  11. FAMOTIDINE [Concomitant]
     Active Substance: FAMOTIDINE
     Indication: Premedication
     Dosage: 20 MG, TOTAL
     Route: 042
     Dates: start: 20211008, end: 20211008
  12. FAMOTIDINE [Concomitant]
     Active Substance: FAMOTIDINE
     Dosage: 20 MG, TOTAL
     Route: 042
     Dates: start: 20211029, end: 20211029
  13. DEXAMETHASONE [Concomitant]
     Active Substance: DEXAMETHASONE
     Indication: Premedication
     Dosage: 20 MG, TOTAL
     Route: 042
     Dates: start: 20211008, end: 20211008
  14. DEXAMETHASONE [Concomitant]
     Active Substance: DEXAMETHASONE
     Route: 042
     Dates: start: 20211029, end: 20211029
  15. PERINDOPRIL ARGININE [Concomitant]
     Active Substance: PERINDOPRIL ARGININE
     Indication: Hypertension
     Dosage: 5 MG, QD
     Route: 048
     Dates: start: 20210920
  16. ACTRAPID [Concomitant]
     Active Substance: INSULIN HUMAN
     Indication: Diabetes mellitus
     Dosage: 8-4-6 UNITS
     Route: 058
     Dates: start: 20211018
  17. METFORMIN [Concomitant]
     Active Substance: METFORMIN HYDROCHLORIDE
     Indication: Diabetes mellitus
     Dosage: 1000 MG, BID
     Route: 048
     Dates: start: 20210920
  18. ONDANSETRON [Concomitant]
     Active Substance: ONDANSETRON
     Indication: Prophylaxis of nausea and vomiting
     Dosage: 4 MG, TOTAL
     Route: 042
     Dates: start: 20211008, end: 20211008
  19. ONDANSETRON [Concomitant]
     Active Substance: ONDANSETRON
     Dosage: 4 MG, TOTAL
     Route: 042
     Dates: start: 20211029, end: 20211029

REACTIONS (8)
  - Rhabdomyolysis [Recovered/Resolved with Sequelae]
  - Muscle atrophy [Not Recovered/Not Resolved]
  - Blood lactate dehydrogenase increased [Unknown]
  - Gait disturbance [Not Recovered/Not Resolved]
  - Aspartate aminotransferase increased [Unknown]
  - Myalgia [Unknown]
  - Anaemia [Recovered/Resolved]
  - Oedema peripheral [Unknown]

NARRATIVE: CASE EVENT DATE: 20211101
